FAERS Safety Report 8538444-9 (Version None)
Quarter: 2012Q3

REPORT INFORMATION
  Report Type: 
  Country: None (occurrence: None)
  Receive Date: 20120712
  Receipt Date: 20120626
  Transmission Date: 20120928
  Serious: Yes (Other)
  Sender: FDA-Public Use
  Company Number: METF20120007

PATIENT
  Age: 36 Year
  Sex: Female
  Weight: 72 kg

DRUGS (4)
  1. GLICLAZIDE (GLICLAZIDE) [Suspect]
     Indication: DIABETES MELLITUS
     Dosage: ORAL
     Route: 048
  2. METFORMIN HYDROCHLORIDE [Suspect]
     Indication: DIABETES MELLITUS
     Dosage: ORAL
     Route: 048
  3. ROSIGLITAZONE [Suspect]
     Indication: DIABETES MELLITUS
     Dosage: ORAL
     Route: 048
  4. INSULIN [Suspect]
     Indication: DIABETES MELLITUS

REACTIONS (7)
  - THROMBOTIC STROKE [None]
  - THIRST [None]
  - FATIGUE [None]
  - HYPERPHAGIA [None]
  - INFARCTION [None]
  - NAUSEA [None]
  - METABOLIC DISORDER [None]
